FAERS Safety Report 4810981-X (Version None)
Quarter: 2005Q4

REPORT INFORMATION
  Report Type: 
  Country: None (occurrence: None)
  Receive Date: 20051025
  Receipt Date: 20051010
  Transmission Date: 20060501
  Serious: Yes (Hospitalization, Other)
  Sender: FDA-Public Use
  Company Number: PHEH2005US09419

PATIENT
  Age: 78 Year
  Sex: Female
  Weight: 44.4525 kg

DRUGS (11)
  1. VISUDYNE [Suspect]
     Indication: RETINAL NEOVASCULARISATION
     Dosage: 24 ML DAILY IV
     Route: 042
     Dates: start: 20050708, end: 20050708
  2. PREDNISONE [Concomitant]
  3. ZOCOR [Concomitant]
  4. COREG [Concomitant]
  5. LOVENOX [Concomitant]
  6. COUMADIN [Concomitant]
  7. LANOXIN [Concomitant]
  8. LISINOPRIL [Concomitant]
  9. PEPCID AC [Concomitant]
  10. DUONEB [Concomitant]
  11. FLUORESCEIN [Concomitant]

REACTIONS (3)
  - BACK PAIN [None]
  - INFUSION RELATED REACTION [None]
  - MYOCARDIAL INFARCTION [None]
